FAERS Safety Report 4485175-0 (Version None)
Quarter: 2004Q4

REPORT INFORMATION
  Report Type: 
  Country: None (occurrence: None)
  Receive Date: 20041026
  Receipt Date: 20040212
  Transmission Date: 20050328
  Serious: No
  Sender: FDA-Public Use
  Company Number: US-BRISTOL-MYERS SQUIBB COMPANY-12503686

PATIENT
  Age: 45 Year
  Sex: Female
  Weight: 78 kg

DRUGS (5)
  1. GLUCOPHAGE XR [Suspect]
     Indication: DIABETES MELLITUS
     Route: 048
     Dates: start: 20030101
  2. METFORMIN HCL [Concomitant]
  3. GLUCOTROL XL [Concomitant]
  4. LISINOPRIL [Concomitant]
  5. ZOCOR [Concomitant]

REACTIONS (1)
  - VAGINAL MYCOSIS [None]
